FAERS Safety Report 7280796-4 (Version None)
Quarter: 2011Q1

REPORT INFORMATION
  Report Type: 
  Country: None (occurrence: None)
  Receive Date: 20110203
  Receipt Date: 20110203
  Transmission Date: 20110831
  Serious: Yes (Hospitalization)
  Sender: FDA-Public Use
  Company Number: None

PATIENT
  Sex: Female
  Weight: 66.2 kg

DRUGS (4)
  1. BEVACIZUMAB (RHUMAB VEGF) [Suspect]
     Dosage: 6216 MG
     Dates: end: 20101209
  2. CISPLATIN [Suspect]
     Dosage: 540 MG
     Dates: end: 20101028
  3. SYNTHROID [Concomitant]
  4. VINORELBINE TARTRATE [Suspect]
     Dosage: 464 MG
     Dates: end: 20101104

REACTIONS (5)
  - CONFUSIONAL STATE [None]
  - LACUNAR INFARCTION [None]
  - HYPERTHYROIDISM [None]
  - MENTAL STATUS CHANGES [None]
  - IATROGENIC INJURY [None]
